FAERS Safety Report 6761322-2 (Version None)
Quarter: 2010Q2

REPORT INFORMATION
  Report Type: 
  Country: None (occurrence: None)
  Receive Date: 20100608
  Receipt Date: 20100528
  Transmission Date: 20101027
  Serious: Yes (Other)
  Sender: FDA-Public Use
  Company Number: DE-JNJCH-2010013354

PATIENT
  Age: 17 Year
  Sex: Male

DRUGS (4)
  1. ZYRTEC [Suspect]
     Indication: DRUG USE FOR UNKNOWN INDICATION
     Dosage: TEXT:UNKNOWN
     Route: 065
  2. LIVOCAB [Concomitant]
     Indication: DRUG USE FOR UNKNOWN INDICATION
     Dosage: TEXT:COMBI PACK(4ML+11.64ML)
     Route: 065
  3. LEVOCABASTINE [Concomitant]
     Indication: DRUG USE FOR UNKNOWN INDICATION
     Dosage: TEXT:UNKNOWN
     Route: 045
  4. LEVOCABASTINE [Concomitant]
     Dosage: TEXT:UNKNOWN
     Route: 047

REACTIONS (11)
  - BODY TEMPERATURE FLUCTUATION [None]
  - C-REACTIVE PROTEIN INCREASED [None]
  - DIZZINESS [None]
  - FATIGUE [None]
  - HEADACHE [None]
  - HYPERHIDROSIS [None]
  - INSOMNIA [None]
  - LEUKOPENIA [None]
  - MONOCYTE COUNT INCREASED [None]
  - RENAL PAIN [None]
  - THROMBOCYTOPENIA [None]
